FAERS Safety Report 14927674 (Version 1)
Quarter: 2018Q2

REPORT INFORMATION
  Report Type: Spontaneous
  Country: US (occurrence: US)
  Receive Date: 20180523
  Receipt Date: 20180523
  Transmission Date: 20180711
  Serious: Yes (Hospitalization, Other)
  Sender: FDA-Public Use
  Company Number: US-ASTRAZENECA-2018SE65682

PATIENT
  Age: 26329 Day
  Sex: Female
  Weight: 93.9 kg

DRUGS (16)
  1. NEXIUM [Suspect]
     Active Substance: ESOMEPRAZOLE MAGNESIUM
     Indication: ULCER
     Dosage: ON AND OFF
     Route: 048
  2. SPIRONOLACTONE. [Concomitant]
     Active Substance: SPIRONOLACTONE
     Indication: HYPERTENSION
     Route: 048
  3. PROTONICS [Concomitant]
     Indication: GASTROINTESTINAL ISCHAEMIA
     Route: 048
  4. MAGNESIUM [Concomitant]
     Active Substance: MAGNESIUM
     Indication: GUILLAIN-BARRE SYNDROME
     Route: 048
     Dates: start: 2011
  5. CARBAMAZAPINE [Concomitant]
     Active Substance: CARBAMAZEPINE
     Indication: NEURALGIA
     Dosage: TWO TIMES A DAY
     Route: 048
     Dates: start: 2013
  6. NEXIUM [Suspect]
     Active Substance: ESOMEPRAZOLE MAGNESIUM
     Indication: GASTROOESOPHAGEAL REFLUX DISEASE
     Dosage: ON AND OFF
     Route: 048
  7. NEXIUM [Suspect]
     Active Substance: ESOMEPRAZOLE MAGNESIUM
     Indication: ULCER
     Dosage: UNK
     Route: 048
  8. NEXIUM [Suspect]
     Active Substance: ESOMEPRAZOLE MAGNESIUM
     Indication: GASTROOESOPHAGEAL REFLUX DISEASE
     Dosage: UNK
     Route: 048
  9. COREG [Concomitant]
     Active Substance: CARVEDILOL
     Indication: HYPERTENSION
     Route: 048
     Dates: start: 2002
  10. BRILINTA [Suspect]
     Active Substance: TICAGRELOR
     Indication: STENT PLACEMENT
     Route: 048
     Dates: start: 20180515
  11. LOSARTAN POTASSIUM. [Concomitant]
     Active Substance: LOSARTAN POTASSIUM
     Indication: HYPERTENSION
     Route: 048
  12. FLONASE GENERIC [Concomitant]
     Indication: MULTIPLE ALLERGIES
     Dosage: DAILY
     Route: 045
  13. BENADRYL [Concomitant]
     Active Substance: DIPHENHYDRAMINE HYDROCHLORIDE
     Dosage: AT NIGHT
     Route: 048
  14. CRESTOR [Suspect]
     Active Substance: ROSUVASTATIN CALCIUM
     Indication: BLOOD CHOLESTEROL ABNORMAL
     Dosage: 20.0MG UNKNOWN
     Route: 048
  15. CRESTOR [Suspect]
     Active Substance: ROSUVASTATIN CALCIUM
     Indication: BLOOD CHOLESTEROL ABNORMAL
     Dosage: 40.0MG UNKNOWN
     Route: 048
  16. CACIUM WITH VIT D [Concomitant]
     Dosage: DAILY
     Route: 048

REACTIONS (15)
  - Haematochezia [Unknown]
  - Abdominal pain [Recovered/Resolved]
  - Biliary colic [Recovered/Resolved]
  - Glycosylated haemoglobin decreased [Unknown]
  - Back pain [Not Recovered/Not Resolved]
  - Body height decreased [Not Recovered/Not Resolved]
  - Laryngitis [Not Recovered/Not Resolved]
  - Arterial occlusive disease [Not Recovered/Not Resolved]
  - Gastrointestinal ischaemia [Unknown]
  - Diarrhoea [Recovered/Resolved]
  - Drug effect incomplete [Unknown]
  - Sinusitis [Recovered/Resolved]
  - Dizziness [Not Recovered/Not Resolved]
  - Fatigue [Not Recovered/Not Resolved]
  - Osteopenia [Not Recovered/Not Resolved]

NARRATIVE: CASE EVENT DATE: 201606
